FAERS Safety Report 13953721 (Version 1)
Quarter: 2017Q3

REPORT INFORMATION
  Report Type: Spontaneous
  Country: US (occurrence: US)
  Receive Date: 20170911
  Receipt Date: 20170911
  Transmission Date: 20171128
  Serious: No
  Sender: FDA-Public Use
  Company Number: US-PFIZER INC-2017391043

PATIENT
  Age: 60 Year
  Sex: Female

DRUGS (1)
  1. IBRANCE [Suspect]
     Active Substance: PALBOCICLIB
     Indication: BREAST CANCER
     Dosage: 1 DF (CAPSULE), CYCLIC (DAILY FOR 21 DAYS AND 7 DAYS OFF EVERY 28 DAYS)
     Route: 048
     Dates: start: 201707

REACTIONS (1)
  - Back pain [Unknown]
